FAERS Safety Report 10775005 (Version 2)
Quarter: 2015Q1

REPORT INFORMATION
  Report Type: Spontaneous
  Country: US (occurrence: US)
  Receive Date: 20150209
  Receipt Date: 20150331
  Transmission Date: 20150721
  Serious: Yes (Other)
  Sender: FDA-Public Use
  Company Number: US-BAYER-2015-014972

PATIENT
  Age: 58 Year
  Sex: Female
  Weight: 98.41 kg

DRUGS (3)
  1. NEXAVAR [Suspect]
     Active Substance: SORAFENIB
     Indication: THYROID CANCER STAGE IV
     Dosage: 200 MG, QD
     Route: 048
     Dates: start: 20150129, end: 20150203
  2. FLECAINIDE [Concomitant]
     Active Substance: FLECAINIDE
     Dosage: 150 MG
  3. NEXAVAR [Suspect]
     Active Substance: SORAFENIB
     Indication: THYROID CANCER STAGE IV
     Dosage: 200 MG, BID
     Route: 048
     Dates: start: 20150106, end: 20150112

REACTIONS (14)
  - Tongue blistering [Recovered/Resolved]
  - Chest pain [Recovered/Resolved]
  - Vaginal haemorrhage [None]
  - Pain [None]
  - Oral mucosal blistering [Recovered/Resolved]
  - Dry skin [None]
  - Weight decreased [Recovered/Resolved]
  - Nipple pain [Not Recovered/Not Resolved]
  - Blister [Recovered/Resolved]
  - Nipple swelling [None]
  - Oropharyngeal blistering [Recovered/Resolved]
  - Swollen tongue [Recovered/Resolved]
  - Feeding disorder [Recovered/Resolved]
  - Glossodynia [None]

NARRATIVE: CASE EVENT DATE: 20150107
